FAERS Safety Report 9383245 (Version 2)
Quarter: 2013Q3

REPORT INFORMATION
  Report Type: Spontaneous
  Country: CH (occurrence: CH)
  Receive Date: 20130704
  Receipt Date: 20130718
  Transmission Date: 20140515
  Serious: Yes (Other)
  Sender: FDA-Public Use
  Company Number: CH-BIOGENIDEC-2013BI059487

PATIENT
  Age: 46 Year
  Sex: Female

DRUGS (2)
  1. AVONEX [Suspect]
     Indication: MULTIPLE SCLEROSIS
     Route: 030
     Dates: start: 20120418
  2. MORPHINE PATCH [Concomitant]
     Indication: PROCEDURAL PAIN
     Route: 062

REACTIONS (2)
  - Mitochondrial myopathy [Not Recovered/Not Resolved]
  - Procedural pain [Unknown]
